FAERS Safety Report 6856984-5 (Version None)
Quarter: 2010Q3

REPORT INFORMATION
  Report Type: 
  Country: None (occurrence: None)
  Receive Date: 20100719
  Receipt Date: 20100628
  Transmission Date: 20110219
  Serious: Yes (Hospitalization, Disabling)
  Sender: FDA-Public Use
  Company Number: A0843941A

PATIENT
  Age: 61 Year
  Sex: Male

DRUGS (6)
  1. AVANDIA [Suspect]
     Indication: DIABETES MELLITUS
     Dosage: 4MG PER DAY
     Route: 048
     Dates: start: 20020101, end: 20090210
  2. ZOCOR [Concomitant]
  3. LOPID [Concomitant]
  4. PRILOSEC [Concomitant]
  5. LEXAPRO [Concomitant]
  6. FLOMAX [Concomitant]

REACTIONS (1)
  - CEREBROVASCULAR ACCIDENT [None]
